FAERS Safety Report 4274298-7 (Version None)
Quarter: 2004Q1

REPORT INFORMATION
  Report Type: 
  Country: None (occurrence: None)
  Receive Date: 20040115
  Receipt Date: 20040107
  Transmission Date: 20041129
  Serious: Yes (Other)
  Sender: FDA-Public Use
  Company Number: 2003125621

PATIENT
  Age: 35 Year
  Sex: Male
  Weight: 89.3586 kg

DRUGS (9)
  1. NEURONTIN [Suspect]
     Indication: PAIN
     Dosage: 900 MG (TID), ORAL
     Route: 048
     Dates: start: 19920601
  2. NEURONTIN [Suspect]
     Indication: TREMOR
     Dosage: 900 MG (TID), ORAL
     Route: 048
     Dates: start: 19920601
  3. BISMUTH SUBALICYLATE (BISMUTH SUBSALICYLATE) [Suspect]
     Indication: DYSPEPSIA
     Dates: start: 20030801, end: 20030801
  4. MORPHINE SULFATE [Concomitant]
  5. CITALOPRAM (CITALOPRAM) [Concomitant]
  6. QUETIAPINE FUMARATE (QUETIAPINE FUMARATE) [Concomitant]
  7. TOPIRAMATE [Concomitant]
  8. VICODIN [Concomitant]
  9. OXYCODONE HCL [Concomitant]

REACTIONS (9)
  - DAYDREAMING [None]
  - DRUG INEFFECTIVE [None]
  - DRUG INTERACTION [None]
  - DRUG LEVEL DECREASED [None]
  - DRUG WITHDRAWAL SYNDROME [None]
  - DYSPEPSIA [None]
  - HALLUCINATION, VISUAL [None]
  - MEDICATION ERROR [None]
  - MENTAL DISORDER [None]
